FAERS Safety Report 17362963 (Version 1)
Quarter: 2020Q1

REPORT INFORMATION
  Report Type: Spontaneous
  Country: ES (occurrence: ES)
  Receive Date: 20200203
  Receipt Date: 20200203
  Transmission Date: 20200409
  Serious: Yes (Hospitalization)
  Sender: FDA-Public Use
  Company Number: ES-NOVOPROD-708803

PATIENT
  Age: 17 Year
  Sex: Female
  Weight: 46.7 kg

DRUGS (4)
  1. NOVORAPID [Suspect]
     Active Substance: INSULIN ASPART
     Indication: TYPE 1 DIABETES MELLITUS
     Dosage: 15 IU, TID (15 IU BREAKFAST, 15 IU LUNCH, 15 IU DINNER)
     Route: 065
     Dates: start: 20190121, end: 20191202
  2. EUTIROX [Interacting]
     Active Substance: LEVOTHYROXINE SODIUM
     Indication: HYPOTHYROIDISM
     Dosage: 225 ?G, QD (3 TABLETS EVERY 7 DAYS, FRIDAY TO SUNDAY)
     Route: 065
     Dates: start: 20190924
  3. LANTUS [Interacting]
     Active Substance: INSULIN GLARGINE
     Indication: TYPE 1 DIABETES MELLITUS
     Dosage: 20 IU, QD
     Route: 065
     Dates: start: 20190528, end: 20191202
  4. EUTIROX [Interacting]
     Active Substance: LEVOTHYROXINE SODIUM
     Indication: HYPOTHYROIDISM
     Dosage: 200 ?G, QD (4 TABLETS EVERY 7 DAYS, MONDAY TO THURSDAY)
     Route: 065
     Dates: start: 20190924

REACTIONS (2)
  - Diabetic ketoacidosis [Recovered/Resolved]
  - Diabetic ketoacidosis [Recovered/Resolved]

NARRATIVE: CASE EVENT DATE: 20191024
